FAERS Safety Report 7243121-0 (Version None)
Quarter: 2011Q1

REPORT INFORMATION
  Report Type: 
  Country: None (occurrence: None)
  Receive Date: 20110125
  Receipt Date: 20110118
  Transmission Date: 20110831
  Serious: Yes (Hospitalization)
  Sender: FDA-Public Use
  Company Number: FR-AMGEN-FRASP2011002914

PATIENT
  Sex: Female

DRUGS (3)
  1. CARBOPLATIN [Concomitant]
     Indication: TONSIL CANCER
  2. TAXOTERE [Concomitant]
     Indication: TONSIL CANCER
  3. NEULASTA [Suspect]
     Indication: CHEMOTHERAPY
     Dosage: UNK

REACTIONS (2)
  - PRURITUS [None]
  - ANGIOEDEMA [None]
